FAERS Safety Report 9513479 (Version 1)
Quarter: 2013Q3

REPORT INFORMATION
  Report Type: Spontaneous
  Country: US (occurrence: US)
  Receive Date: 20130910
  Receipt Date: 20130910
  Transmission Date: 20140515
  Serious: No
  Sender: FDA-Public Use
  Company Number: US-TARO-2013P1004793

PATIENT
  Age: 85 Year
  Sex: Male
  Weight: 54.43 kg

DRUGS (9)
  1. WARFARIN SODIUM TABLETS USP 2MG [Suspect]
     Indication: ATRIAL FIBRILLATION
     Route: 048
     Dates: start: 2011
  2. WARFARIN SODIUM TABLETS USP 2MG [Suspect]
     Route: 048
     Dates: start: 2011
  3. WARFARIN SODIUM TABLETS USP 2MG [Suspect]
     Route: 048
     Dates: start: 2011
  4. WARFARIN SODIUM TABLETS USP 2MG [Suspect]
     Indication: ATRIAL FIBRILLATION
     Route: 048
     Dates: start: 2011
  5. WARFARIN SODIUM TABLETS USP 2MG [Suspect]
     Route: 048
     Dates: start: 2011
  6. WARFARIN SODIUM TABLETS USP 2MG [Suspect]
     Route: 048
     Dates: start: 2011
  7. I-CAP [Concomitant]
  8. SIMVASTATIN [Concomitant]
     Dates: start: 2003
  9. METOPROLOL [Concomitant]

REACTIONS (1)
  - International normalised ratio decreased [Not Recovered/Not Resolved]
